FAERS Safety Report 16619027 (Version 1)
Quarter: 2019Q3

REPORT INFORMATION
  Report Type: Spontaneous
  Country: CZ (occurrence: CZ)
  Receive Date: 20190723
  Receipt Date: 20190723
  Transmission Date: 20191004
  Serious: Yes (Other)
  Sender: FDA-Public Use
  Company Number: PHHY2019CZ165807

PATIENT
  Sex: Female

DRUGS (3)
  1. PAZOPANIB [Suspect]
     Active Substance: PAZOPANIB
     Indication: RENAL CELL CARCINOMA
     Dosage: 800 MG, QD
     Route: 065
     Dates: start: 201607
  2. PAZOPANIB [Suspect]
     Active Substance: PAZOPANIB
     Dosage: 600 MG, QD
     Route: 065
  3. PAZOPANIB [Suspect]
     Active Substance: PAZOPANIB
     Dosage: 400 MG, QD
     Route: 065

REACTIONS (5)
  - Vomiting [Recovered/Resolved]
  - Anaemia [Not Recovered/Not Resolved]
  - Concomitant disease progression [Not Recovered/Not Resolved]
  - Diarrhoea [Recovered/Resolved]
  - Rash [Recovered/Resolved]
